FAERS Safety Report 4405424-4 (Version None)
Quarter: 2004Q3

REPORT INFORMATION
  Report Type: 
  Country: None (occurrence: None)
  Receive Date: 20040723
  Receipt Date: 20030820
  Transmission Date: 20050211
  Serious: No
  Sender: FDA-Public Use
  Company Number: US-GLAXOSMITHKLINE-A0422711A

PATIENT
  Age: 54 Year
  Sex: Male

DRUGS (7)
  1. AVANDIA [Suspect]
     Dosage: 4MG PER DAY
     Route: 048
     Dates: start: 20030801
  2. AVAPRO [Concomitant]
  3. HYTRIN [Concomitant]
  4. MEVACOR [Concomitant]
  5. TIAZAC [Concomitant]
  6. ALLOPURINOL [Concomitant]
  7. GLYNASE [Concomitant]

REACTIONS (2)
  - BLOOD GLUCOSE INCREASED [None]
  - HEADACHE [None]
